FAERS Safety Report 7537085-X (Version None)
Quarter: 2011Q2

REPORT INFORMATION
  Report Type: 
  Country: None (occurrence: None)
  Receive Date: 20110609
  Receipt Date: 20110527
  Transmission Date: 20111010
  Serious: No
  Sender: FDA-Public Use
  Company Number: PHHY2011JP15629

PATIENT
  Sex: Female

DRUGS (3)
  1. DIOVAN HCT [Suspect]
     Indication: HYPERTENSION
     Dosage: 1 DF, DAILY
     Route: 048
     Dates: start: 20090519, end: 20100317
  2. WARFARIN POTASSIUM [Concomitant]
     Dosage: 2 MG, UNK
     Route: 048
     Dates: start: 20090512
  3. LIPITOR [Concomitant]
     Dosage: 10 MG, UNK
     Route: 048
     Dates: start: 20090512

REACTIONS (3)
  - DEHYDRATION [None]
  - BLOOD UREA INCREASED [None]
  - HYPERURICAEMIA [None]
